FAERS Safety Report 5584186-1 (Version None)
Quarter: 2008Q1

REPORT INFORMATION
  Report Type: 
  Country: None (occurrence: None)
  Receive Date: 20080108
  Receipt Date: 20080103
  Transmission Date: 20080703
  Serious: Yes (Hospitalization)
  Sender: FDA-Public Use
  Company Number: JP-BRACCO-BRO-012365

PATIENT
  Age: 85 Year
  Sex: Female

DRUGS (7)
  1. IOPAMIDOL [Suspect]
     Indication: COMPUTERISED TOMOGRAM ABDOMEN
     Route: 042
     Dates: start: 20071116, end: 20071116
  2. IOPAMIDOL [Suspect]
     Indication: METASTASES TO LIVER
     Route: 042
     Dates: start: 20071116, end: 20071116
  3. BOSMIN [Concomitant]
     Route: 042
     Dates: start: 20071116, end: 20071116
  4. ADALAT [Concomitant]
     Indication: HYPERTENSION
     Route: 048
  5. MINIPRESS [Concomitant]
     Indication: HYPERTENSION
     Route: 048
  6. UBRETID [Concomitant]
     Indication: NEUROGENIC BLADDER
     Route: 048
  7. SOLU-MEDROL [Concomitant]
     Route: 042
     Dates: start: 20071116, end: 20071116

REACTIONS (4)
  - BLOOD PRESSURE DECREASED [None]
  - FEELING ABNORMAL [None]
  - HYPOAESTHESIA [None]
  - TREMOR [None]
